FAERS Safety Report 19846137 (Version 1)
Quarter: 2021Q3

REPORT INFORMATION
  Report Type: Spontaneous
  Country: US (occurrence: US)
  Receive Date: 20210917
  Receipt Date: 20210917
  Transmission Date: 20211014
  Serious: Yes (Hospitalization)
  Sender: FDA-Public Use
  Company Number: None

PATIENT
  Age: 62 Year
  Sex: Female

DRUGS (19)
  1. RIZATRIPTAN. [Concomitant]
     Active Substance: RIZATRIPTAN
  2. BACLOFEN. [Concomitant]
     Active Substance: BACLOFEN
  3. DIVALPROEX [Concomitant]
     Active Substance: DIVALPROEX SODIUM
  4. FUROSEMIDE. [Concomitant]
     Active Substance: FUROSEMIDE
  5. LOSARTAN POT [Concomitant]
     Active Substance: LOSARTAN POTASSIUM
  6. TOLVAPTAN TABLETS [Suspect]
     Active Substance: TOLVAPTAN
     Indication: HYPONATRAEMIA
     Route: 048
     Dates: start: 20210518
  7. METOCLOPRAM [Concomitant]
     Active Substance: METOCLOPRAMIDE
  8. PROCHLORPER [Concomitant]
  9. TRAZODONE [Concomitant]
     Active Substance: TRAZODONE HYDROCHLORIDE
  10. BUT/APAP/CAF [Concomitant]
  11. ONDANSETRON [Concomitant]
     Active Substance: ONDANSETRON
  12. ARIPIPRAZOLE. [Concomitant]
     Active Substance: ARIPIPRAZOLE
  13. LORAZEPAM. [Concomitant]
     Active Substance: LORAZEPAM
  14. DESIPRAMINE [Concomitant]
     Active Substance: DESIPRAMINE
  15. PROPRANOLOL [Concomitant]
     Active Substance: PROPRANOLOL HYDROCHLORIDE
  16. AMLODIPINE [Concomitant]
     Active Substance: AMLODIPINE BESYLATE
  17. LEVETIRACETA [Concomitant]
     Active Substance: LEVETIRACETAM
  18. MIRTAZAPINE. [Concomitant]
     Active Substance: MIRTAZAPINE
  19. PRIMIDONE. [Concomitant]
     Active Substance: PRIMIDONE

REACTIONS (2)
  - Product dose omission issue [None]
  - Insurance issue [None]

NARRATIVE: CASE EVENT DATE: 20210914
